FAERS Safety Report 7749195-2 (Version None)
Quarter: 2011Q3

REPORT INFORMATION
  Report Type: 
  Country: None (occurrence: None)
  Receive Date: 20110914
  Receipt Date: 20110902
  Transmission Date: 20111222
  Serious: Yes (Life-Threatening, Hospitalization, Other)
  Sender: FDA-Public Use
  Company Number: US-BAYER-2010-004357

PATIENT
  Age: 29 Year
  Sex: Female
  Weight: 63.492 kg

DRUGS (10)
  1. MULTI-VITAMINS [Concomitant]
     Dosage: UNK
     Dates: start: 20000101
  2. SUMATRIPTAN SUCCINATE [Concomitant]
     Dosage: UNK
     Dates: start: 20060101
  3. TREXIMET [Concomitant]
     Dosage: UNK
     Dates: start: 20060101
  4. ASCORBIC ACID [Concomitant]
     Dosage: UNK
     Dates: start: 20000101
  5. FIORICET [Concomitant]
     Dosage: UNK
     Dates: start: 20060101
  6. MIDRIN [Concomitant]
     Dosage: UNK
     Dates: start: 20060101
  7. MOTRIN [Concomitant]
  8. RELPAX [Concomitant]
     Dosage: UNK
     Dates: start: 20060101
  9. YASMIN [Suspect]
     Dosage: UNK
     Route: 048
     Dates: start: 20050808, end: 20070616
  10. MAXALT [Concomitant]
     Dosage: UNK
     Dates: start: 20060101

REACTIONS (6)
  - CHOLECYSTITIS [None]
  - PAIN [None]
  - GALLBLADDER DISORDER [None]
  - CHOLELITHIASIS [None]
  - ANXIETY [None]
  - EMOTIONAL DISTRESS [None]
